FAERS Safety Report 10869531 (Version 1)
Quarter: 2015Q1

REPORT INFORMATION
  Report Type: Spontaneous
  Country: US (occurrence: US)
  Receive Date: 20150226
  Receipt Date: 20150226
  Transmission Date: 20150721
  Serious: No
  Sender: FDA-Public Use
  Company Number: US-GLAXOSMITHKLINE-US2015012860

PATIENT
  Age: 57 Year
  Sex: Male

DRUGS (5)
  1. LOXAPINE. [Concomitant]
     Active Substance: LOXAPINE
     Indication: TREMOR
     Dosage: UNK
  2. CARBIDOPA WITH LEVODOPA [Concomitant]
     Active Substance: CARBIDOPA\LEVODOPA
     Indication: PARKINSON^S DISEASE
  3. NICODERM CQ [Suspect]
     Active Substance: NICOTINE
     Indication: SMOKING CESSATION THERAPY
     Dosage: 21 MG, UNK
     Dates: start: 201501
  4. KLONOPIN [Concomitant]
     Active Substance: CLONAZEPAM
     Indication: ABNORMAL DREAMS
     Dosage: UNK
  5. TRIHEXYPHENIDYL [Concomitant]
     Active Substance: TRIHEXYPHENIDYL
     Indication: TREMOR

REACTIONS (6)
  - Disorientation [Not Recovered/Not Resolved]
  - Abnormal dreams [Not Recovered/Not Resolved]
  - Expired product administered [Unknown]
  - Condition aggravated [Not Recovered/Not Resolved]
  - Palpitations [Not Recovered/Not Resolved]
  - Drug interaction [Not Recovered/Not Resolved]

NARRATIVE: CASE EVENT DATE: 201501
